FAERS Safety Report 8356216-5 (Version None)
Quarter: 2012Q2

REPORT INFORMATION
  Report Type: 
  Country: None (occurrence: None)
  Receive Date: 20120514
  Receipt Date: 20120504
  Transmission Date: 20120825
  Serious: Yes (Other)
  Sender: FDA-Public Use
  Company Number: US-US-EMD SERONO, INC.-7019609

PATIENT
  Sex: Male

DRUGS (6)
  1. REBIF [Suspect]
     Indication: MULTIPLE SCLEROSIS
     Route: 058
     Dates: start: 20100526, end: 20100921
  2. SOLU-MEDROL [Concomitant]
     Indication: PRODUCT USED FOR UNKNOWN INDICATION
  3. UNSPECIFIED MEDICATIONS [Concomitant]
     Indication: ARTHRITIS
  4. UNSPECIFIED MEDICATION [Concomitant]
     Indication: HYPERTENSION
  5. REBIF [Suspect]
     Route: 058
     Dates: start: 20100101
  6. UNSPECIFIED MEDICATIONS [Concomitant]
     Indication: THYROID DISORDER

REACTIONS (2)
  - INFLUENZA LIKE ILLNESS [None]
  - PNEUMONIA [None]
